FAERS Safety Report 5060350-5 (Version None)
Quarter: 2006Q3

REPORT INFORMATION
  Report Type: 
  Country: None (occurrence: None)
  Receive Date: 20060720
  Receipt Date: 20060412
  Transmission Date: 20061208
  Serious: Yes (Disabling, Other)
  Sender: FDA-Public Use
  Company Number: 2006BH008119

PATIENT
  Age: 55 Year
  Sex: Male
  Weight: 165 kg

DRUGS (17)
  1. EXTRANEAL [Suspect]
     Indication: RENAL FAILURE CHRONIC
     Dosage: 2000 ML; EVERY DAY; IP
     Route: 033
     Dates: start: 20030818, end: 20040305
  2. DIANEAL [Suspect]
     Indication: RENAL FAILURE CHRONIC
     Dosage: 2500 ML; 2X 1 DAY; IP
     Route: 033
     Dates: start: 20030801, end: 20040305
  3. CALCIUM CARBONATE [Concomitant]
  4. TEPRENONE [Concomitant]
  5. MOSAPRIDE CITRATE [Concomitant]
  6. GUANABENZ ACETATE [Concomitant]
  7. LAFUTIDINE [Concomitant]
  8. AMLODIPINE BESYLATE [Concomitant]
  9. CANDESARTAN CILEXETIL [Concomitant]
  10. CALCITRIOL [Concomitant]
  11. PYRIDOXAL PHOSPHATE [Concomitant]
  12. TRIAZOLAM [Concomitant]
  13. PURSENNIDE [Concomitant]
  14. FLUVOXAMINE MALEATE [Concomitant]
  15. DOMPERIDONE [Concomitant]
  16. METOPROLOL TARTRATE [Concomitant]
  17. CLONAZEPAM [Concomitant]

REACTIONS (7)
  - BLOOD ALBUMIN DECREASED [None]
  - HAEMATOCRIT DECREASED [None]
  - HAEMOGLOBIN DECREASED [None]
  - PROCEDURAL COMPLICATION [None]
  - RED BLOOD CELL COUNT DECREASED [None]
  - SCLEROSING ENCAPSULATING PERITONITIS [None]
  - WHITE BLOOD CELL COUNT INCREASED [None]
